FAERS Safety Report 5446667-0 (Version None)
Quarter: 2007Q3

REPORT INFORMATION
  Report Type: 
  Country: None (occurrence: None)
  Receive Date: 20070907
  Receipt Date: 20070830
  Transmission Date: 20080115
  Serious: Yes (Life-Threatening, Hospitalization, Other)
  Sender: FDA-Public Use
  Company Number: AT-SHR-AT-2007-022431

PATIENT
  Age: 44 Year
  Sex: Female
  Weight: 60 kg

DRUGS (2)
  1. MIRENA [Suspect]
     Indication: CONTRACEPTION
     Dosage: 20 A?G/DAY, CONT
     Route: 015
     Dates: start: 19970101, end: 20020101
  2. MIRENA [Suspect]
     Dosage: 20 A?G, CONT
     Route: 015
     Dates: start: 20020101, end: 20030101

REACTIONS (1)
  - BREAST CANCER [None]
